FAERS Safety Report 18803024 (Version 2)
Quarter: 2021Q1

REPORT INFORMATION
  Report Type: Spontaneous
  Country: LV (occurrence: LV)
  Receive Date: 20210129
  Receipt Date: 20210205
  Transmission Date: 20210419
  Serious: Yes (Other)
  Sender: FDA-Public Use
  Company Number: LV-AUROBINDO-AUR-APL-2021-002962

PATIENT
  Age: 30 Year
  Sex: Female
  Weight: 93 kg

DRUGS (1)
  1. GABAPENTIN  AUROBINDO, HARD CAPSULES 400MG [Suspect]
     Active Substance: GABAPENTIN
     Indication: EPILEPSY
     Dosage: 800 MILLIGRAM, TWO TIMES A DAY
     Route: 048
     Dates: start: 20210113

REACTIONS (4)
  - Insomnia [Unknown]
  - Anxiety [Unknown]
  - Panic attack [Unknown]
  - Initial insomnia [Unknown]

NARRATIVE: CASE EVENT DATE: 20210114
